FAERS Safety Report 9869402 (Version 1)
Quarter: 2014Q1

REPORT INFORMATION
  Report Type: Spontaneous
  Country: GT (occurrence: GT)
  Receive Date: 20140205
  Receipt Date: 20140205
  Transmission Date: 20141002
  Serious: Yes (Other)
  Sender: FDA-Public Use
  Company Number: PHHY2014GT013565

PATIENT
  Age: 60 Year
  Sex: Male

DRUGS (1)
  1. ACLASTA [Suspect]
     Indication: CALCIUM DEFICIENCY
     Dosage: 5 MG/100ML, ANNUAL
     Route: 042
     Dates: start: 20131020

REACTIONS (11)
  - Conjunctivitis allergic [Recovered/Resolved]
  - Total lung capacity decreased [Unknown]
  - Dyspnoea [Unknown]
  - Muscle contracture [Not Recovered/Not Resolved]
  - Musculoskeletal pain [Recovered/Resolved]
  - Arthralgia [Recovered/Resolved]
  - Malaise [Recovered/Resolved]
  - Neck pain [Not Recovered/Not Resolved]
  - Back pain [Not Recovered/Not Resolved]
  - Muscle spasms [Not Recovered/Not Resolved]
  - Myalgia [Not Recovered/Not Resolved]
